FAERS Safety Report 17657227 (Version 3)
Quarter: 2020Q2

REPORT INFORMATION
  Report Type: Report from Study
  Country: GB (occurrence: GB)
  Receive Date: 20200410
  Receipt Date: 20200512
  Transmission Date: 20200713
  Serious: Yes (Other)
  Sender: FDA-Public Use
  Company Number: NVSC2020GB096332

PATIENT
  Sex: Female

DRUGS (1)
  1. HYRIMOZ [Suspect]
     Active Substance: ADALIMUMAB-ADAZ
     Indication: PSORIASIS
     Dosage: 1 DF, Q2W (EOW)
     Route: 065
     Dates: start: 20190929

REACTIONS (5)
  - Psoriasis [Unknown]
  - Hepatic cirrhosis [Unknown]
  - Pruritus [Unknown]
  - Drug ineffective [Unknown]
  - Injection site mass [Unknown]
